FAERS Safety Report 25084547 (Version 1)
Quarter: 2025Q1

REPORT INFORMATION
  Report Type: Spontaneous
  Country: US (occurrence: US)
  Receive Date: 20250317
  Receipt Date: 20250317
  Transmission Date: 20250409
  Serious: Yes (Hospitalization)
  Sender: PFIZER
  Company Number: US-PFIZER INC-202500057013

PATIENT
  Age: 54 Year
  Sex: Female

DRUGS (26)
  1. BOSULIF [Suspect]
     Active Substance: BOSUTINIB MONOHYDRATE
     Indication: Chronic myeloid leukaemia
     Dosage: 500 MG, DAILY
     Route: 048
  2. VALTREX [Concomitant]
     Active Substance: VALACYCLOVIR HYDROCHLORIDE
  3. CUVITRU [Concomitant]
     Active Substance: HUMAN IMMUNOGLOBULIN G
  4. ACETAMINOPHEN [Concomitant]
     Active Substance: ACETAMINOPHEN
  5. CLINDAMYCIN HYDROCHLORIDE [Concomitant]
     Active Substance: CLINDAMYCIN HYDROCHLORIDE
  6. DIFLUCAN [Concomitant]
     Active Substance: FLUCONAZOLE
  7. TUDORZA PRESSAIR [Concomitant]
     Active Substance: ACLIDINIUM BROMIDE
  8. TIZANIDINE HYDROCHLORIDE [Concomitant]
     Active Substance: TIZANIDINE HYDROCHLORIDE
  9. DIPHENHYDRAMINE HYDROCHLORIDE [Concomitant]
     Active Substance: DIPHENHYDRAMINE HYDROCHLORIDE
  10. POTASSIUM [Concomitant]
     Active Substance: POTASSIUM
  11. CALCIUM [Concomitant]
     Active Substance: CALCIUM
  12. FERROUS GLUCONATE [Concomitant]
     Active Substance: FERROUS GLUCONATE
  13. PROBIOTIC CHEWABLE [Concomitant]
  14. SUPER B COMPLEX [ASCORBIC ACID;BIOTIN;CYANOCOBALAMIN;FOLIC ACID;NICOTI [Concomitant]
  15. HYDROXYZINE HYDROCHLORIDE [Concomitant]
     Active Substance: HYDROXYZINE HYDROCHLORIDE
  16. HERBALS\TURMERIC [Concomitant]
     Active Substance: HERBALS\TURMERIC
  17. ZYRTEC [Concomitant]
     Active Substance: CETIRIZINE HYDROCHLORIDE
  18. VITAMIN D3 [Concomitant]
     Active Substance: CHOLECALCIFEROL
  19. XOPENEX HFA [Concomitant]
     Active Substance: LEVALBUTEROL TARTRATE
  20. MUCINEX [Concomitant]
     Active Substance: GUAIFENESIN
  21. ZEGERID [GLIMEPIRIDE] [Concomitant]
  22. DULERA [Concomitant]
     Active Substance: FORMOTEROL FUMARATE DIHYDRATE\MOMETASONE FUROATE
  23. MUPIROCIN [Concomitant]
     Active Substance: MUPIROCIN
  24. SINGULAIR [Concomitant]
     Active Substance: MONTELUKAST SODIUM
  25. SMOOTH MOVE [Concomitant]
  26. LIDOCAINE HYDROCHLORIDE [Concomitant]
     Active Substance: LIDOCAINE HYDROCHLORIDE

REACTIONS (3)
  - Ventricular tachycardia [Unknown]
  - Atrial fibrillation [Unknown]
  - Bradycardia [Unknown]
